FAERS Safety Report 9884123 (Version 1)
Quarter: 2014Q1

REPORT INFORMATION
  Report Type: Spontaneous
  Country: US (occurrence: None)
  Receive Date: 20140207
  Receipt Date: 20140207
  Transmission Date: 20141002
  Serious: No
  Sender: FDA-Public Use
  Company Number: None

PATIENT
  Age: 55 Year
  Sex: Male
  Weight: 113.4 kg

DRUGS (1)
  1. PRADAXA [Suspect]
     Route: 048

REACTIONS (4)
  - Arthralgia [None]
  - Musculoskeletal pain [None]
  - Arthralgia [None]
  - Arthralgia [None]
